FAERS Safety Report 14268253 (Version 1)
Quarter: 2017Q4

REPORT INFORMATION
  Report Type: Spontaneous
  Country: JP (occurrence: JP)
  Receive Date: 20171211
  Receipt Date: 20171211
  Transmission Date: 20180321
  Serious: Yes (Other)
  Sender: FDA-Public Use
  Company Number: JP-BRISTOL-MYERS SQUIBB COMPANY-BMSP1997-00105

PATIENT

DRUGS (1)
  1. KENALOG [Suspect]
     Active Substance: TRIAMCINOLONE ACETONIDE
     Indication: ASTHMA
     Dosage: UNK
     Route: 030
     Dates: start: 19960605, end: 19960605

REACTIONS (1)
  - Status asthmaticus [Recovered/Resolved]

NARRATIVE: CASE EVENT DATE: 19960605
